FAERS Safety Report 7227975-X (Version None)
Quarter: 2011Q1

REPORT INFORMATION
  Report Type: 
  Country: None (occurrence: None)
  Receive Date: 20110112
  Receipt Date: 20110112
  Transmission Date: 20110831
  Serious: No
  Sender: FDA-Public Use
  Company Number: None

PATIENT
  Age: 61 Year
  Sex: Female
  Weight: 65.7716 kg

DRUGS (1)
  1. CIPROFLOXACIN 500 MG DR. REDDY?S LAB. INC-IMPRINT R 127 [Suspect]
     Indication: URINARY TRACT INFECTION
     Dosage: 500 MG TABLETS TWICE DAILY PO
     Route: 048
     Dates: start: 20090710, end: 20090717

REACTIONS (2)
  - ARTHRALGIA [None]
  - MYALGIA [None]
